FAERS Safety Report 5584276-3 (Version None)
Quarter: 2008Q1

REPORT INFORMATION
  Report Type: 
  Country: None (occurrence: None)
  Receive Date: 20080108
  Receipt Date: 20071228
  Transmission Date: 20080703
  Serious: Yes (Disabling)
  Sender: FDA-Public Use
  Company Number: B0496972A

PATIENT
  Age: 46 Year
  Sex: Female

DRUGS (8)
  1. FLUTIDE DISKUS [Suspect]
     Indication: ASTHMA
     Dosage: 200MCG TWICE PER DAY
     Route: 055
     Dates: start: 20060919
  2. SEREVENT [Suspect]
     Indication: ASTHMA
     Dosage: 50MCG TWICE PER DAY
     Route: 055
     Dates: start: 20060919
  3. CHINESE MEDICINE [Concomitant]
     Indication: ASTHMA
     Dosage: 7.5G PER DAY
     Route: 048
     Dates: start: 20061109
  4. CHINESE MEDICINE [Concomitant]
     Dosage: 9G PER DAY
     Route: 048
     Dates: start: 20061109
  5. ONON [Concomitant]
     Indication: ASTHMA
     Dosage: 450MG PER DAY
     Route: 048
     Dates: start: 20060919
  6. CHINESE MEDICINE [Concomitant]
     Dosage: 7.5G PER DAY
     Route: 048
     Dates: start: 20071016
  7. MEPTIN AIR [Concomitant]
     Indication: ASTHMA
     Route: 055
  8. CHINESE MEDICINE [Concomitant]
     Dosage: 7.5G PER DAY
     Route: 048
     Dates: start: 20060925

REACTIONS (1)
  - HYPOSMIA [None]
